FAERS Safety Report 10162196 (Version 1)
Quarter: 2014Q2

REPORT INFORMATION
  Report Type: Spontaneous
  Country: US (occurrence: None)
  Receive Date: 20140508
  Receipt Date: 20140508
  Transmission Date: 20141212
  Serious: Yes (Life-Threatening)
  Sender: FDA-Public Use
  Company Number: None

PATIENT
  Age: 55 Year
  Sex: Female
  Weight: 102.97 kg

DRUGS (16)
  1. CEFTRIAXONE [Suspect]
     Indication: BRONCHITIS
     Dosage: 1 GRAM MIXED WITH LIDOCAINE 1 % ONCE INTRAMUSCULAR
     Route: 030
     Dates: start: 20140505
  2. CEFTRIAXONE [Suspect]
     Indication: PHARYNGITIS
     Dosage: 1 GRAM MIXED WITH LIDOCAINE 1 % ONCE INTRAMUSCULAR
     Route: 030
     Dates: start: 20140505
  3. METHYLPREDNISONE [Suspect]
     Indication: BRONCHITIS
     Route: 030
     Dates: start: 20140505, end: 20140505
  4. METHYLPREDNISONE [Suspect]
     Indication: PHARYNGITIS
     Route: 030
     Dates: start: 20140505, end: 20140505
  5. METHYLPREDNISONE [Suspect]
     Indication: EAR PAIN
     Route: 030
     Dates: start: 20140505, end: 20140505
  6. ASPIRIN [Concomitant]
  7. CARAFATE [Concomitant]
  8. CELEXA [Concomitant]
  9. GLIPIZIDE [Concomitant]
  10. GLUCOPHAGE [Concomitant]
  11. HCTZ [Concomitant]
  12. IBUPROFEN [Concomitant]
  13. JANUVIA [Concomitant]
  14. LISINOPRIL [Concomitant]
  15. OMEPAZOLE [Concomitant]
  16. PROVENTIL HFA [Concomitant]

REACTIONS (1)
  - Anaphylactic reaction [None]
